FAERS Safety Report 19959253 (Version 1)
Quarter: 2021Q4

REPORT INFORMATION
  Report Type: Spontaneous
  Country: US (occurrence: US)
  Receive Date: 20211013
  Receipt Date: 20211013
  Transmission Date: 20220303
  Serious: Yes (Death)
  Sender: FDA-Public Use
  Company Number: None

PATIENT
  Age: 73 Year
  Sex: Male
  Weight: 92 kg

DRUGS (2)
  1. CASIRIVIMAB [Suspect]
     Active Substance: CASIRIVIMAB
     Indication: COVID-19
     Dosage: ?          OTHER ROUTE:IV
     Route: 042
     Dates: start: 20211008, end: 20211008
  2. IMDEVIMAB [Suspect]
     Active Substance: IMDEVIMAB
     Dosage: ?          OTHER ROUTE:IV
     Route: 042
     Dates: start: 20211008, end: 20211008

REACTIONS (8)
  - Nausea [None]
  - Vomiting [None]
  - Chills [None]
  - Tremor [None]
  - Fatigue [None]
  - Cardio-respiratory arrest [None]
  - Anaphylactic reaction [None]
  - Respiratory depression [None]

NARRATIVE: CASE EVENT DATE: 20211008
